FAERS Safety Report 14033612 (Version 1)
Quarter: 2017Q4

REPORT INFORMATION
  Report Type: Report from Study
  Country: US (occurrence: US)
  Receive Date: 20171003
  Receipt Date: 20171003
  Transmission Date: 20180321
  Serious: Yes (Hospitalization)
  Sender: FDA-Public Use
  Company Number: US-ROCHE-1999889

PATIENT
  Sex: Male

DRUGS (2)
  1. VALGANCICLOVIR. [Suspect]
     Active Substance: VALGANCICLOVIR
     Indication: HIV INFECTION
     Dosage: 450 MG 2 TABS QD
     Route: 048
  2. VALGANCICLOVIR. [Suspect]
     Active Substance: VALGANCICLOVIR
     Indication: EYE INFLAMMATION

REACTIONS (1)
  - Cerebrovascular accident [Unknown]
